FAERS Safety Report 9137319 (Version 1)
Quarter: 2013Q1

REPORT INFORMATION
  Report Type: Spontaneous
  Country: US (occurrence: US)
  Receive Date: 20130304
  Receipt Date: 20130304
  Transmission Date: 20140127
  Serious: No
  Sender: FDA-Public Use
  Company Number: US-ABBOTT-12P-163-1028728-00

PATIENT
  Sex: Male
  Weight: 86.26 kg

DRUGS (4)
  1. ANDROGEL [Suspect]
     Indication: BLOOD TESTOSTERONE DECREASED
     Dosage: 2 PUMPS PER DAY
     Dates: start: 201207
  2. ANDROGEL [Suspect]
     Dosage: 1 PUMP PER DAY
     Dates: start: 2012
  3. UNKNOWN MEDICATION [Concomitant]
     Indication: CARDIAC DISORDER
  4. UNKNOWN MEDICATION [Concomitant]
     Indication: DIABETES MELLITUS

REACTIONS (2)
  - Prostatic specific antigen increased [Unknown]
  - Loss of libido [Unknown]
